FAERS Safety Report 5099867-6 (Version None)
Quarter: 2006Q3

REPORT INFORMATION
  Report Type: 
  Country: None (occurrence: None)
  Receive Date: 20060906
  Receipt Date: 20060906
  Transmission Date: 20061208
  Serious: Yes (Other)
  Sender: FDA-Public Use
  Company Number: None

PATIENT
  Age: 36 Year
  Sex: Female
  Weight: 90.7194 kg

DRUGS (2)
  1. ULTRAM [Suspect]
     Indication: BACK PAIN
     Dosage: 50MG EVERY 4 HOURS PO
     Route: 048
     Dates: start: 20040630, end: 20060905
  2. ULTRAM [Suspect]
     Indication: INTERVERTEBRAL DISC DEGENERATION
     Dosage: 50MG EVERY 4 HOURS PO
     Route: 048
     Dates: start: 20040630, end: 20060905

REACTIONS (2)
  - DRUG INEFFECTIVE [None]
  - PHARMACEUTICAL PRODUCT COMPLAINT [None]
